FAERS Safety Report 12314225 (Version 1)
Quarter: 2016Q2

REPORT INFORMATION
  Report Type: Spontaneous
  Country: GR (occurrence: GR)
  Receive Date: 20160428
  Receipt Date: 20160428
  Transmission Date: 20160815
  Serious: Yes (Hospitalization)
  Sender: FDA-Public Use
  Company Number: GR-ELI_LILLY_AND_COMPANY-GR201602007266

PATIENT
  Age: 31 Year
  Sex: Female

DRUGS (2)
  1. CYMBALTA [Suspect]
     Active Substance: DULOXETINE HYDROCHLORIDE
     Indication: MIGRAINE
     Dosage: 30 MG, UNK
     Route: 048
     Dates: start: 20160216
  2. INSULIN [Concomitant]
     Active Substance: INSULIN NOS
     Dosage: UNK, UNKNOWN
     Route: 065

REACTIONS (3)
  - Diabetic coma [Unknown]
  - Blood glucose increased [Unknown]
  - Off label use [Unknown]

NARRATIVE: CASE EVENT DATE: 20160216
